FAERS Safety Report 8052146-7 (Version None)
Quarter: 2012Q1

REPORT INFORMATION
  Report Type: 
  Country: None (occurrence: None)
  Receive Date: 20120118
  Receipt Date: 20120112
  Transmission Date: 20120608
  Serious: No
  Sender: FDA-Public Use
  Company Number: US-PFIZER INC-2012010647

PATIENT
  Sex: Male
  Weight: 111 kg

DRUGS (7)
  1. LYRICA [Concomitant]
     Indication: NEUROPATHY PERIPHERAL
     Dosage: 75 MG, DAILY
     Dates: start: 20101001
  2. LYRICA [Concomitant]
     Dosage: 75 MG, 2X/DAY
  3. NEURONTIN [Suspect]
     Dosage: 100 MG, AS NEEDED
  4. WELLBUTRIN [Suspect]
     Indication: DEPRESSION
     Dosage: 300 MG, DAILY
     Dates: start: 20071101
  5. LYRICA [Concomitant]
     Dosage: 75 MG, UNK
     Dates: end: 20110115
  6. NORVASC [Concomitant]
     Indication: CARDIAC DISORDER
     Dosage: UNK
  7. NEURONTIN [Suspect]
     Dosage: 100 MG TO A MAXIMUM OF 600 MG A DAY AS NEEDED
     Dates: start: 20071101

REACTIONS (1)
  - FEELING ABNORMAL [None]
